FAERS Safety Report 10136081 (Version 1)
Quarter: 2014Q2

REPORT INFORMATION
  Report Type: Spontaneous
  Country: US (occurrence: US)
  Receive Date: 20140429
  Receipt Date: 20140429
  Transmission Date: 20141212
  Serious: No
  Sender: FDA-Public Use
  Company Number: US-BIOGENIDEC-2014BI039311

PATIENT
  Age: 47 Year
  Sex: Female

DRUGS (1)
  1. TYSABRI [Suspect]
     Indication: MULTIPLE SCLEROSIS
     Route: 042
     Dates: start: 20130717

REACTIONS (8)
  - Fungal infection [Unknown]
  - Stress [Not Recovered/Not Resolved]
  - Crying [Recovered/Resolved]
  - Vertigo [Unknown]
  - Muscular weakness [Unknown]
  - Anxiety [Unknown]
  - Oral herpes [Recovered/Resolved]
  - Fatigue [Unknown]
